FAERS Safety Report 24365191 (Version 1)
Quarter: 2024Q3

REPORT INFORMATION
  Report Type: Spontaneous
  Country: DE (occurrence: DE)
  Receive Date: 20240926
  Receipt Date: 20240926
  Transmission Date: 20241017
  Serious: Yes (Hospitalization)
  Sender: AUROBINDO
  Company Number: DE-SAMSUNG BIOEPIS-SB-2023-29102

PATIENT
  Age: 58 Year
  Sex: Male
  Weight: 56 kg

DRUGS (15)
  1. DOCETAXEL [Suspect]
     Active Substance: DOCETAXEL\DOCETAXEL ANHYDROUS
     Indication: Oesophageal adenocarcinoma
     Dosage: 92 MILLIGRAM (50 MG/M2, IV, D1/D15 PER-AND POST OP;)
     Route: 042
     Dates: start: 20231011
  2. DOCETAXEL [Suspect]
     Active Substance: DOCETAXEL\DOCETAXEL ANHYDROUS
     Dosage: 93 MILLIGRAM (50 MG/M2, IV, D1/D15 PER-AND POST OP;)
     Route: 042
     Dates: start: 20231011
  3. DOCETAXEL [Suspect]
     Active Substance: DOCETAXEL\DOCETAXEL ANHYDROUS
     Dosage: 92 MILLIGRAM (50 MG/M2, IV, D1/D15 PER-AND POST OP;)
     Route: 042
     Dates: start: 20231011
  4. LEUCOVORIN [Suspect]
     Active Substance: LEUCOVORIN\LEUCOVORIN CALCIUM
     Indication: Oesophageal adenocarcinoma
     Dosage: 370 MILLIGRAM (200 MG/M2, IV, D1/D15 PER-AND POST OP;0
     Route: 042
     Dates: start: 20231011
  5. OXALIPLATIN [Suspect]
     Active Substance: OXALIPLATIN
     Indication: Oesophageal adenocarcinoma
     Dosage: 157 MILLIGRAM (85 MG/M2, IV, D1/D15 PER-AND POST OP;)
     Route: 042
     Dates: start: 20231011
  6. OXALIPLATIN [Suspect]
     Active Substance: OXALIPLATIN
     Dosage: 118 MILLIGRAM
     Route: 042
     Dates: start: 20231015
  7. OXALIPLATIN [Suspect]
     Active Substance: OXALIPLATIN
     Dosage: 78 MILLIGRAM
     Route: 042
     Dates: start: 20231011
  8. FLUOROURACIL [Suspect]
     Active Substance: FLUOROURACIL
     Indication: Oesophageal adenocarcinoma
     Dosage: 4810 MILLIGRAM (2600 MG/M2, IV, D1/D15 PER-AND POST OP;)
     Route: 042
     Dates: start: 20231011
  9. ONTRUZANT [Suspect]
     Active Substance: TRASTUZUMAB-DTTB
     Indication: Oesophageal adenocarcinoma
     Dosage: 552 MILLIGRAM (D1: 8 MG/KG, IV;)_
     Route: 042
     Dates: start: 20231011
  10. ONTRUZANT [Suspect]
     Active Substance: TRASTUZUMAB-DTTB
     Dosage: 416 MILLIGRAM
     Route: 065
     Dates: start: 20231108
  11. ONTRUZANT [Suspect]
     Active Substance: TRASTUZUMAB-DTTB
     Dosage: 416 MILLIGRAM
     Route: 065
     Dates: start: 20231011, end: 20231206
  12. ONTRUZANT [Suspect]
     Active Substance: TRASTUZUMAB-DTTB
     Dosage: 360 MILLIGRAM
     Route: 042
     Dates: start: 20231011, end: 20240411
  13. ONTRUZANT [Suspect]
     Active Substance: TRASTUZUMAB-DTTB
     Dosage: 360 MILLIGRAM
     Route: 042
     Dates: start: 20231011
  14. PEMBROLIZUMAB [Suspect]
     Active Substance: PEMBROLIZUMAB
     Indication: Oesophageal adenocarcinoma
     Dosage: 200 MILLIGRAM (200 MG FLAT DOSE, IV, D1 PER-AND POST OP,)
     Route: 042
     Dates: start: 20231011, end: 20231011
  15. PEMBROLIZUMAB [Suspect]
     Active Substance: PEMBROLIZUMAB
     Dosage: 200 MILLIGRAM (200 MG FLAT DOSE, IV, D1 PER-AND POST OP,)
     Route: 042
     Dates: start: 20231011, end: 20240320

REACTIONS (8)
  - Diarrhoea [Recovered/Resolved]
  - Pyrexia [Recovered/Resolved]
  - Fatigue [Unknown]
  - Product use in unapproved indication [Unknown]
  - Abdominal pain [Recovered/Resolved]
  - Gastrointestinal disorder [Recovered/Resolved]
  - Procedural pain [Recovered/Resolved]
  - Colitis [Recovered/Resolved]

NARRATIVE: CASE EVENT DATE: 20231025
